FAERS Safety Report 6635978-9 (Version None)
Quarter: 2010Q1

REPORT INFORMATION
  Report Type: 
  Country: None (occurrence: None)
  Receive Date: 20100311
  Receipt Date: 20100222
  Transmission Date: 20100710
  Serious: Yes (Hospitalization, Other)
  Sender: FDA-Public Use
  Company Number: 435686

PATIENT
  Age: 45 Year
  Sex: Female

DRUGS (9)
  1. (ERYTHROMYCIN) [Suspect]
     Indication: ANTIBIOTIC PROPHYLAXIS
  2. CAELYX /00330901 [Suspect]
     Indication: BREAST CANCER METASTATIC
  3. OMEPRAZOLE [Suspect]
     Indication: DRUG USE FOR UNKNOWN INDICATION
  4. DOCETAXEL [Suspect]
     Indication: BREAST CANCER METASTATIC
     Dosage: 75 MG/M2
  5. DEXAMETHASONE [Concomitant]
  6. GRANISETRON [Concomitant]
  7. MORPHINE SULFATE [Concomitant]
  8. IBUPROFEN [Concomitant]
  9. METOCLOPRAMIDE [Concomitant]

REACTIONS (12)
  - ABDOMINAL DISTENSION [None]
  - DRUG INTERACTION [None]
  - FEBRILE NEUTROPENIA [None]
  - GALLBLADDER DISORDER [None]
  - HAEMATEMESIS [None]
  - HAEMODYNAMIC INSTABILITY [None]
  - JAUNDICE CHOLESTATIC [None]
  - METASTASES TO CENTRAL NERVOUS SYSTEM [None]
  - MOUTH ULCERATION [None]
  - NO THERAPEUTIC RESPONSE [None]
  - PSEUDOMEMBRANOUS COLITIS [None]
  - RASH MACULO-PAPULAR [None]
